FAERS Safety Report 18090945 (Version 1)
Quarter: 2020Q3

REPORT INFORMATION
  Report Type: Spontaneous
  Country: US (occurrence: US)
  Receive Date: 20200729
  Receipt Date: 20200729
  Transmission Date: 20201103
  Serious: No
  Sender: FDA-Public Use
  Company Number: None

PATIENT
  Age: 27 Year
  Sex: Female
  Weight: 77.5 kg

DRUGS (14)
  1. NORMAL SALINE INFUSION [Concomitant]
     Dates: start: 20200722, end: 20200723
  2. CEFTRIAXONE 1G IN 100ML NS [Concomitant]
     Dates: start: 20200722, end: 20200722
  3. RISAQUAD CAPSULE [Concomitant]
     Dates: start: 20200722, end: 20200726
  4. ENOXAPARIN 40MG SYRINGE [Concomitant]
     Active Substance: ENOXAPARIN
     Dates: start: 20200722, end: 20200726
  5. ZOFRAN 4MG INJ [Concomitant]
     Dates: start: 20200722, end: 20200722
  6. REMDESIVIR. [Suspect]
     Active Substance: REMDESIVIR
     Indication: COVID-19
     Dosage: ?          OTHER FREQUENCY:ONCE;?
     Route: 041
     Dates: start: 20200722, end: 20200725
  7. MONTELUKAST [Concomitant]
     Active Substance: MONTELUKAST SODIUM
     Dates: start: 20200722, end: 20200726
  8. POTASSIUM CHLORIDE CR 40MEQ [Concomitant]
     Dates: start: 20200722, end: 20200722
  9. ASPIRIN 81MG CHEWABLE TAB [Concomitant]
     Dates: start: 20200722, end: 20200726
  10. ZINC SULFATE. [Concomitant]
     Active Substance: ZINC SULFATE
     Dates: start: 20200722, end: 20200726
  11. ACETAMINOPHEN 1000MG TAB [Concomitant]
     Dates: start: 20200722, end: 20200726
  12. ACETAMINOPHEN 650MG TAB [Concomitant]
     Dates: start: 20200722, end: 20200722
  13. AZITHROMYCIN 500MG TAB [Concomitant]
     Active Substance: AZITHROMYCIN
     Dates: start: 20200722, end: 20200722
  14. METHYLPREDNISOLONE 40MG IV [Concomitant]
     Dates: start: 20200722, end: 20200726

REACTIONS (4)
  - Nausea [None]
  - Vomiting [None]
  - Diarrhoea [None]
  - Tachycardia [None]

NARRATIVE: CASE EVENT DATE: 20200722
